FAERS Safety Report 5987361-7 (Version None)
Quarter: 2008Q4

REPORT INFORMATION
  Report Type: 
  Country: None (occurrence: None)
  Receive Date: 20081209
  Receipt Date: 20081201
  Transmission Date: 20090506
  Serious: Yes (Hospitalization, Other)
  Sender: FDA-Public Use
  Company Number: PHHY2008JP29280

PATIENT
  Age: 38 Year
  Sex: Male

DRUGS (3)
  1. RITALIN [Suspect]
     Indication: ANXIETY DISORDER
     Dosage: UNK MG, UNK
     Route: 048
  2. TRICYCLIC ANTIDEPRESSANTS [Concomitant]
  3. BENZODIAZEPINES [Concomitant]

REACTIONS (8)
  - ANXIETY [None]
  - AUTONOMIC NEUROPATHY [None]
  - CARDIAC FAILURE ACUTE [None]
  - DILATATION VENTRICULAR [None]
  - DYSPNOEA [None]
  - HYPOKINESIA [None]
  - PULMONARY CONGESTION [None]
  - SCINTIGRAPHY [None]
